FAERS Safety Report 8969923 (Version 1)
Quarter: 2012Q4

REPORT INFORMATION
  Report Type: 
  Country: US (occurrence: US)
  Receive Date: 20121218
  Receipt Date: 20121218
  Transmission Date: 20130627
  Serious: No
  Sender: FDA-Public Use
  Company Number: US-009507513-1212USA004698

PATIENT
  Sex: Female

DRUGS (3)
  1. PEGINTRON [Suspect]
     Indication: HEPATITIS C
     Dosage: 80 Microgram, qw
     Route: 058
     Dates: start: 201202
  2. SPIRIVA [Concomitant]
  3. METHADONE HYDROCHLORIDE [Concomitant]

REACTIONS (9)
  - Hunger [Recovering/Resolving]
  - Drug dose omission [Unknown]
  - Weight decreased [Recovering/Resolving]
  - Diarrhoea [Recovering/Resolving]
  - Fatigue [Recovering/Resolving]
  - Full blood count decreased [Recovering/Resolving]
  - Full blood count increased [Recovering/Resolving]
  - Feeling abnormal [Recovering/Resolving]
  - Incorrect storage of drug [Unknown]
